FAERS Safety Report 4384236-4 (Version None)
Quarter: 2004Q2

REPORT INFORMATION
  Report Type: 
  Country: None (occurrence: None)
  Receive Date: 20040621
  Receipt Date: 20040603
  Transmission Date: 20050107
  Serious: Yes (Hospitalization, Other)
  Sender: FDA-Public Use
  Company Number: 700610

PATIENT
  Age: 67 Year
  Sex: Male
  Weight: 110.6777 kg

DRUGS (6)
  1. ALEFACEPT [Suspect]
     Indication: PSORIASIS
     Dosage: 15 MG QW IM
     Route: 030
     Dates: start: 20020125, end: 20020416
  2. MULTI-VITAMINS [Concomitant]
  3. ASPIRIN [Concomitant]
  4. CELEBREX [Concomitant]
  5. AMOXICILLIN [Concomitant]
  6. TOURO EX [Concomitant]

REACTIONS (23)
  - AGRANULOCYTOSIS [None]
  - ALANINE AMINOTRANSFERASE INCREASED [None]
  - BODY TINEA [None]
  - BONE MARROW DEPRESSION [None]
  - CELLULITIS [None]
  - DIVERTICULUM INTESTINAL [None]
  - EPSTEIN-BARR VIRUS INFECTION [None]
  - FALL [None]
  - GAMMA-GLUTAMYLTRANSFERASE INCREASED [None]
  - INFECTION [None]
  - JOINT INJURY [None]
  - LEUKOPENIA [None]
  - LIVER FUNCTION TEST ABNORMAL [None]
  - LYMPHOCYTOSIS [None]
  - MONOCYTE COUNT DECREASED [None]
  - MYELODYSPLASTIC SYNDROME [None]
  - NAUSEA [None]
  - NEUTROPENIA [None]
  - PLATELET DISORDER [None]
  - PNEUMONIA [None]
  - TOOTH ABSCESS [None]
  - VISION BLURRED [None]
  - VOMITING [None]
